FAERS Safety Report 4714990-0 (Version None)
Quarter: 2005Q3

REPORT INFORMATION
  Report Type: 
  Country: None (occurrence: None)
  Receive Date: 20050715
  Receipt Date: 20050614
  Transmission Date: 20060218
  Serious: Yes (Other)
  Sender: FDA-Public Use
  Company Number: US-BOEHRINGER INGELHEIM PHARMACEUTICALS, INC.-2005-BP-10008BP

PATIENT
  Age: 63 Year
  Sex: Male

DRUGS (16)
  1. SPIRIVA [Suspect]
     Indication: CHRONIC OBSTRUCTIVE PULMONARY DISEASE
     Route: 055
     Dates: start: 20050601, end: 20050607
  2. NEORAL [Concomitant]
  3. PREDNISONE [Concomitant]
  4. CLONIDINE [Concomitant]
  5. LIPITOR [Concomitant]
     Dosage: 20 MG PM
  6. TOPROL-XL [Concomitant]
     Dosage: 100 MG PM
  7. ZOLOFT [Concomitant]
     Dosage: 50 MG PM
  8. CALCIUM SUPPLEMENT [Concomitant]
     Dosage: BID
  9. ASPIRIN [Concomitant]
     Dosage: 81 MG AM
  10. PROCRIT [Concomitant]
  11. DIATX [Concomitant]
  12. NORVASC [Concomitant]
     Dosage: 5 MG PM
  13. NEXIUM [Concomitant]
     Dosage: 40 MG AM
  14. ANDROGEL [Concomitant]
  15. CALCITRIOL [Concomitant]
  16. TITRALAC [Concomitant]

REACTIONS (5)
  - DIZZINESS [None]
  - DRY MOUTH [None]
  - FALL [None]
  - HEART RATE INCREASED [None]
  - LOSS OF CONSCIOUSNESS [None]
